FAERS Safety Report 8314731-4 (Version None)
Quarter: 2012Q2

REPORT INFORMATION
  Report Type: 
  Country: None (occurrence: None)
  Receive Date: 20120426
  Receipt Date: 20120416
  Transmission Date: 20120825
  Serious: Yes (Death, Other)
  Sender: FDA-Public Use
  Company Number: ZA-CELGENEUS-143-21880-11091893

PATIENT
  Sex: Female
  Weight: 60 kg

DRUGS (15)
  1. ENOXAPARIN SODIUM [Concomitant]
     Dosage: 60 MILLIGRAM
     Route: 065
     Dates: start: 20110701
  2. LYRICA [Concomitant]
     Dosage: 300 MILLIGRAM
     Route: 048
     Dates: start: 20110701, end: 20120323
  3. MORPHINE [Concomitant]
     Route: 048
     Dates: start: 20120323, end: 20120331
  4. TRIEPTAL [Concomitant]
     Indication: PAIN MANAGEMENT
     Dosage: 600 MILLIGRAM
     Route: 048
     Dates: start: 20110801, end: 20120323
  5. NEXIUM [Concomitant]
     Indication: PROPHYLAXIS
     Dosage: 40 MILLIGRAM
     Route: 048
     Dates: start: 20110201, end: 20120323
  6. REVLIMID [Suspect]
     Dosage: 20 MILLIGRAM
     Route: 048
     Dates: start: 20110409
  7. VELCADE [Concomitant]
     Indication: MULTIPLE MYELOMA
     Dosage: 2.2 MILLIGRAM
     Route: 050
     Dates: start: 20110614, end: 20110908
  8. DECADRON [Concomitant]
     Dosage: 5.7143 MILLIGRAM
     Route: 065
     Dates: start: 20110831, end: 20120313
  9. MORPHINE [Concomitant]
     Indication: PAIN MANAGEMENT
     Route: 048
     Dates: start: 20110831, end: 20120323
  10. REVLIMID [Suspect]
     Dosage: 10 MILLIGRAM
     Route: 048
  11. VELCADE [Concomitant]
     Indication: CHEMOTHERAPY
     Dosage: .3143 MILLIGRAM
     Route: 050
     Dates: start: 20120229, end: 20120313
  12. ACYCLOVIR [Concomitant]
     Dosage: 200 MILLIGRAM
     Route: 048
     Dates: start: 20110110
  13. DECADRON [Concomitant]
     Indication: CHEMOTHERAPY
     Dosage: 40 MILLIGRAM
     Route: 065
     Dates: start: 20110401, end: 20110908
  14. DETRONORM [Concomitant]
     Indication: BLADDER SPASM
     Dosage: 30 MILLIGRAM
     Route: 048
     Dates: start: 20110801, end: 20120323
  15. ZOMETA [Concomitant]
     Dosage: 4 MILLIGRAM
     Route: 065
     Dates: start: 20110307, end: 20110908

REACTIONS (3)
  - RENAL FAILURE ACUTE [None]
  - MULTIPLE MYELOMA [None]
  - SEPSIS [None]
